FAERS Safety Report 6482744-3 (Version None)
Quarter: 2009Q4

REPORT INFORMATION
  Report Type: 
  Country: None (occurrence: None)
  Receive Date: 20091209
  Receipt Date: 20091022
  Transmission Date: 20100525
  Serious: No
  Sender: FDA-Public Use
  Company Number: US-AMGEN-KDL370569

PATIENT
  Sex: Female
  Weight: 67.2 kg

DRUGS (4)
  1. ENBREL [Suspect]
     Indication: RHEUMATOID ARTHRITIS
     Route: 058
     Dates: start: 20030101
  2. SYNTHROID [Concomitant]
  3. LORTAB [Concomitant]
  4. MEDROL [Concomitant]

REACTIONS (8)
  - ARTHROPOD BITE [None]
  - EXFOLIATIVE RASH [None]
  - INJECTION SITE ERYTHEMA [None]
  - INJECTION SITE PAIN [None]
  - RASH [None]
  - RASH ERYTHEMATOUS [None]
  - SECRETION DISCHARGE [None]
  - SWELLING [None]
